FAERS Safety Report 20183432 (Version 1)
Quarter: 2021Q4

REPORT INFORMATION
  Report Type: Spontaneous
  Country: US (occurrence: US)
  Receive Date: 20211214
  Receipt Date: 20211214
  Transmission Date: 20220303
  Serious: No
  Sender: FDA-Public Use
  Company Number: US-PCYC-2017PHC29079

PATIENT
  Sex: Female

DRUGS (1)
  1. IMBRUVICA [Suspect]
     Active Substance: IBRUTINIB
     Indication: Chronic lymphocytic leukaemia
     Dosage: UNK
     Route: 065

REACTIONS (8)
  - Drug ineffective [Unknown]
  - Influenza like illness [Unknown]
  - Photosensitivity reaction [Unknown]
  - Atrial fibrillation [Unknown]
  - White blood cell count abnormal [Unknown]
  - Hepatic enzyme increased [Unknown]
  - Fatigue [Unknown]
  - Illness [Unknown]
